FAERS Safety Report 23252275 (Version 1)
Quarter: 2023Q4

REPORT INFORMATION
  Report Type: Report from Study
  Country: MX (occurrence: None)
  Receive Date: 20231201
  Receipt Date: 20231201
  Transmission Date: 20240109
  Serious: Yes (Other)
  Sender: FDA-Public Use
  Company Number: 2023A271537

PATIENT
  Age: 691 Month
  Sex: Female
  Weight: 77.5 kg

DRUGS (12)
  1. PULMICORT TURBUHALER [Suspect]
     Active Substance: BUDESONIDE
     Indication: Bronchitis
     Dosage: 0.250MG/ML
     Route: 055
     Dates: start: 202311, end: 202311
  2. PULMICORT TURBUHALER [Suspect]
     Active Substance: BUDESONIDE
     Indication: Bronchitis
     Dosage: 0.250MG/ML
     Route: 055
     Dates: start: 202310, end: 202311
  3. PULMICORT TURBUHALER [Suspect]
     Active Substance: BUDESONIDE
     Indication: Bronchitis
     Route: 055
     Dates: start: 20231116
  4. PULMICORT TURBUHALER [Suspect]
     Active Substance: BUDESONIDE
     Indication: Bronchitis
     Route: 055
     Dates: start: 20231117
  5. PULMICORT TURBUHALER [Suspect]
     Active Substance: BUDESONIDE
     Indication: Bronchitis
     Route: 055
     Dates: start: 20231118
  6. TRELEGY ELLIPTA [Concomitant]
     Active Substance: FLUTICASONE FUROATE\UMECLIDINIUM BROMIDE\VILANTEROL TRIFENATATE
     Indication: Bronchitis
     Route: 048
  7. FLUTICASONE FUROATE [Concomitant]
     Active Substance: FLUTICASONE FUROATE
     Indication: Oropharyngeal pain
     Route: 045
  8. GOTINAL MAR SOFT [Concomitant]
     Indication: Bronchitis
     Dosage: EVERY 8 HOURS
  9. LEVOCETIRIZINE [Concomitant]
     Active Substance: LEVOCETIRIZINE
     Indication: Bronchitis
     Dosage: ONE TABLET IN THE MORNING PRESCRIBED
     Route: 048
  10. ACETYLCYSTEINE [Concomitant]
     Active Substance: ACETYLCYSTEINE
     Indication: Bronchitis
     Dosage: 600.0MG UNKNOWN
  11. REDOXON [Concomitant]
     Indication: Bronchitis
  12. FEVOLUT [Concomitant]
     Indication: Bronchitis
     Dosage: 0.5/2.5/2.5ML

REACTIONS (6)
  - Vein disorder [Recovered/Resolved]
  - Breast swelling [Recovered/Resolved]
  - Muscle spasms [Recovered/Resolved]
  - Paraesthesia [Recovered/Resolved]
  - Hypersensitivity [Recovered/Resolved]
  - Off label use [Recovered/Resolved]

NARRATIVE: CASE EVENT DATE: 20231001
